FAERS Safety Report 13620793 (Version 1)
Quarter: 2017Q2

REPORT INFORMATION
  Report Type: Spontaneous
  Country: FR (occurrence: FR)
  Receive Date: 20170607
  Receipt Date: 20170607
  Transmission Date: 20170830
  Serious: Yes (Hospitalization, Other)
  Sender: FDA-Public Use
  Company Number: FR-PFIZER INC-2017240777

PATIENT
  Age: 55 Year
  Sex: Female

DRUGS (11)
  1. INEXIUM /01479302/ [Concomitant]
     Active Substance: ESOMEPRAZOLE MAGNESIUM
     Dosage: 1 DF, 2X/DAY
  2. IBUPROFEN. [Concomitant]
     Active Substance: IBUPROFEN
     Indication: PAIN
     Dosage: 1 DF, 2X/DAY
  3. ALMOGRAN [Concomitant]
     Active Substance: ALMOTRIPTAN MALATE
     Indication: MIGRAINE
     Dosage: 1 DF, AS NEEDED
  4. XANAX [Suspect]
     Active Substance: ALPRAZOLAM
     Indication: SUICIDE ATTEMPT
     Dosage: UNK
     Route: 048
     Dates: start: 20170403, end: 20170403
  5. URBANYL [Suspect]
     Active Substance: CLOBAZAM
     Dosage: 50 MG, SINGLE
     Route: 048
     Dates: start: 20170402, end: 20170402
  6. EDUCTYL [Concomitant]
     Active Substance: POTASSIUM BITARTRATE\SODIUM BICARBONATE
     Dosage: UNK, AS NEEDED
  7. LAMOTRIGINE. [Suspect]
     Active Substance: LAMOTRIGINE
     Dosage: 100 MG, 3X/DAY
  8. EPITOMAX [Concomitant]
     Active Substance: TOPIRAMATE
     Dosage: 2 DF, 2X/DAY (MORNINGS AND EVENINGS)
  9. URBANYL [Suspect]
     Active Substance: CLOBAZAM
     Indication: SUICIDE ATTEMPT
     Dosage: 1 DF, 2X/DAY
     Route: 048
  10. XARELTO [Concomitant]
     Active Substance: RIVAROXABAN
     Dosage: 1 DF, 1X/DAY (EVENINGS)
  11. VENTOLINE /00139501/ [Concomitant]
     Active Substance: ALBUTEROL
     Dosage: UNK, AS NEEDED

REACTIONS (4)
  - Overdose [Unknown]
  - Suicide attempt [Unknown]
  - Altered state of consciousness [Recovered/Resolved]
  - Toxicity to various agents [Unknown]

NARRATIVE: CASE EVENT DATE: 20170403
